FAERS Safety Report 4279891-3 (Version None)
Quarter: 2004Q1

REPORT INFORMATION
  Report Type: 
  Country: None (occurrence: None)
  Receive Date: 20040126
  Receipt Date: 20040108
  Transmission Date: 20041129
  Serious: Yes (Hospitalization, Other)
  Sender: FDA-Public Use
  Company Number: 04-005-0092

PATIENT
  Age: 44 Year
  Sex: Male

DRUGS (1)
  1. DOXORUBICIN HCL [Suspect]
     Indication: HEPATIC NEOPLASM MALIGNANT
     Dosage: 60MG/M2 IV X 1
     Route: 042
     Dates: start: 20031224, end: 20031224

REACTIONS (1)
  - FEBRILE NEUTROPENIA [None]
